FAERS Safety Report 24983180 (Version 1)
Quarter: 2025Q1

REPORT INFORMATION
  Report Type: Spontaneous
  Country: GB (occurrence: GB)
  Receive Date: 20250218
  Receipt Date: 20250218
  Transmission Date: 20250408
  Serious: Yes (Hospitalization, Other)
  Sender: ORGANON
  Company Number: None

PATIENT
  Age: 76 Year
  Sex: Female

DRUGS (2)
  1. LOSARTAN POTASSIUM [Suspect]
     Active Substance: LOSARTAN POTASSIUM
     Indication: Hypertension
     Dosage: 50 MILLIGRAM, ONCE DAILY (OD)
     Dates: end: 20250216
  2. QUININE [Concomitant]
     Active Substance: QUININE
     Indication: Muscle spasms

REACTIONS (1)
  - Hyponatraemic seizure [Recovering/Resolving]

NARRATIVE: CASE EVENT DATE: 20250216
